FAERS Safety Report 13817408 (Version 3)
Quarter: 2021Q1

REPORT INFORMATION
  Report Type: Spontaneous
  Country: FR (occurrence: FR)
  Receive Date: 20170731
  Receipt Date: 20210331
  Transmission Date: 20210419
  Serious: Yes (Life-Threatening, Hospitalization)
  Sender: FDA-Public Use
  Company Number: PHHY2017FR109945

PATIENT
  Age: 60 Year
  Sex: Male

DRUGS (3)
  1. ALPRAZOLAM. [Concomitant]
     Active Substance: ALPRAZOLAM
     Indication: ANXIETY
     Dosage: 0.25 MG, UNK(PRN)
     Route: 065
  2. PARACETAMOL [Suspect]
     Active Substance: ACETAMINOPHEN
     Indication: PRODUCT USED FOR UNKNOWN INDICATION
     Dosage: 64 G
     Route: 065
  3. AMITRIPTYLIN [Concomitant]
     Active Substance: AMITRIPTYLINE
     Indication: DEPRESSION
     Dosage: 50 MG, QD(1 DAY)
     Route: 065

REACTIONS (10)
  - Alanine aminotransferase increased [Unknown]
  - Intentional overdose [Recovered/Resolved]
  - Analgesic drug level increased [Recovering/Resolving]
  - Body temperature decreased [Recovered/Resolved]
  - Prothrombin time shortened [Unknown]
  - Coma [Recovered/Resolved]
  - Aspartate aminotransferase increased [Unknown]
  - Vomiting [Recovered/Resolved]
  - Toxicity to various agents [Recovered/Resolved]
  - Lactic acidosis [Recovered/Resolved]
